FAERS Safety Report 5847684-9 (Version None)
Quarter: 2008Q3

REPORT INFORMATION
  Report Type: 
  Country: None (occurrence: None)
  Receive Date: 20080814
  Receipt Date: 20080801
  Transmission Date: 20090109
  Serious: Yes (Death)
  Sender: FDA-Public Use
  Company Number: 230001M08CHN

PATIENT
  Age: 42 Year
  Sex: Male
  Weight: 75 kg

DRUGS (1)
  1. REBIF [Suspect]
     Indication: MULTIPLE SCLEROSIS
     Dosage: 6000000 IU, 3 IN 1 WEEKS, SUBCUTANEOUS
     Route: 058
     Dates: start: 20080729, end: 20080731

REACTIONS (7)
  - CARDIAC FAILURE [None]
  - FATIGUE [None]
  - HYPERHIDROSIS [None]
  - MYALGIA [None]
  - PULMONARY FUNCTION TEST DECREASED [None]
  - SOMNOLENCE [None]
  - VOMITING [None]
